FAERS Safety Report 16036068 (Version 1)
Quarter: 2019Q1

REPORT INFORMATION
  Report Type: Spontaneous
  Country: GB (occurrence: GB)
  Receive Date: 20190305
  Receipt Date: 20190305
  Transmission Date: 20190418
  Serious: Yes (Hospitalization)
  Sender: FDA-Public Use
  Company Number: GB-TEVA-2019-GB-1018135

PATIENT
  Age: 74 Year
  Sex: Male

DRUGS (14)
  1. OMEPRAZOLE. [Suspect]
     Active Substance: OMEPRAZOLE
     Indication: UPPER GASTROINTESTINAL HAEMORRHAGE
     Dosage: 20-40MG ONCE DAILY IN THE MORNING.
     Route: 048
     Dates: start: 20181208
  2. AMOXICILLIN. [Suspect]
     Active Substance: AMOXICILLIN
     Indication: URINARY TRACT INFECTION
     Dosage: DOUBLE STRENGTH.
     Route: 048
     Dates: start: 20181217, end: 20181226
  3. CEFALEXIN [Suspect]
     Active Substance: CEPHALEXIN
     Indication: URINARY TRACT INFECTION
     Dosage: 750 MILLIGRAM DAILY;
     Route: 048
     Dates: start: 20190121, end: 20190124
  4. ACETYLSALICYLIC ACID [Concomitant]
     Active Substance: ASPIRIN
     Dosage: 75 MILLIGRAM DAILY; IN THE MORNING.
  5. LANSOPRAZOLE. [Suspect]
     Active Substance: LANSOPRAZOLE
     Indication: UPPER GASTROINTESTINAL HAEMORRHAGE
     Dosage: 30 MILLIGRAM DAILY;
     Route: 048
     Dates: start: 20190121
  6. PIPERACILLIN SODIUM [Suspect]
     Active Substance: PIPERACILLIN SODIUM
     Indication: UROSEPSIS
     Dosage: 9 GRAM DAILY;
     Route: 042
     Dates: start: 20181207
  7. CALCICHEW [Concomitant]
     Active Substance: CALCIUM CARBONATE
     Dosage: 1500 MILLIGRAM DAILY;
  8. TAMSULOSIN [Concomitant]
     Active Substance: TAMSULOSIN
     Dosage: 400 MICROGRAM DAILY; IN THE MORNING.
  9. ARANESP [Concomitant]
     Active Substance: DARBEPOETIN ALFA
  10. SODIUM HYDROGEN CARBONATE [Concomitant]
     Active Substance: SODIUM BICARBONATE
     Dosage: 4 GRAM DAILY;
  11. MACROGOL [Concomitant]
     Active Substance: POLYETHYLENE GLYCOLS
  12. DILTIAZEM. [Concomitant]
     Active Substance: DILTIAZEM
     Dosage: 360 MILLIGRAM DAILY;
  13. TROSPIUM [Concomitant]
     Active Substance: TROSPIUM
     Dosage: 40 MILLIGRAM DAILY;
  14. TEMOCILLIN [Suspect]
     Active Substance: TEMOCILLIN
     Indication: URINARY TRACT INFECTION
     Route: 042
     Dates: start: 20190117, end: 20190121

REACTIONS (1)
  - Clostridium difficile infection [Recovering/Resolving]

NARRATIVE: CASE EVENT DATE: 20190130
